FAERS Safety Report 9178239 (Version 1)
Quarter: 2013Q1

REPORT INFORMATION
  Report Type: Spontaneous
  Country: US (occurrence: US)
  Receive Date: 20130321
  Receipt Date: 20130321
  Transmission Date: 20140127
  Serious: Yes (Other)
  Sender: FDA-Public Use
  Company Number: US-ASTRAZENECA-2013SE16598

PATIENT
  Age: 75 Year
  Sex: Female

DRUGS (8)
  1. SYMBICORT  PMDI [Suspect]
     Indication: ASTHMA
     Dosage: 160/4.5 MCG, 2 PUFFS BID
     Route: 055
     Dates: start: 20120621, end: 20120628
  2. SYMBICORT  PMDI [Suspect]
     Indication: ASTHMA
     Dosage: 2 PUFFS BID
     Route: 055
     Dates: start: 201212, end: 20130102
  3. DULARA 200MCG/ 5 MG [Concomitant]
     Indication: ASTHMA
     Dosage: 200MCG/5MG, 2 PUFFS BID
     Route: 055
     Dates: start: 2012, end: 2012
  4. QVAR [Concomitant]
     Indication: ASTHMA
     Route: 061
     Dates: start: 2012, end: 2012
  5. AMLODOPINE [Concomitant]
     Indication: HYPERTENSION
     Route: 048
  6. AMLODOPINE [Concomitant]
     Indication: HYPERTENSION
     Route: 048
  7. STEROID SHOT [Concomitant]
     Indication: DYSPNOEA
     Route: 050
     Dates: start: 20130311
  8. SINGULAIR [Concomitant]
     Indication: DYSPNOEA
     Route: 048
     Dates: start: 20130311

REACTIONS (6)
  - Lipoma [Unknown]
  - Pertussis [Unknown]
  - Malaise [Not Recovered/Not Resolved]
  - Dyspnoea [Unknown]
  - Fatigue [Not Recovered/Not Resolved]
  - Muscle spasms [Recovered/Resolved]
